FAERS Safety Report 8301998-1 (Version None)
Quarter: 2012Q2

REPORT INFORMATION
  Report Type: 
  Country: None (occurrence: None)
  Receive Date: 20120420
  Receipt Date: 20120419
  Transmission Date: 20120825
  Serious: Yes (Life-Threatening, Other)
  Sender: FDA-Public Use
  Company Number: PHHO2011PT020910

PATIENT
  Sex: Female
  Weight: 69 kg

DRUGS (1)
  1. GILENYA [Suspect]
     Indication: MULTIPLE SCLEROSIS
     Dosage: 0.5 MG, QD
     Route: 048
     Dates: start: 20110202, end: 20111024

REACTIONS (3)
  - METASTASES TO LIVER [None]
  - METASTASES TO BONE [None]
  - BREAST CANCER [None]
